FAERS Safety Report 13962245 (Version 4)
Quarter: 2017Q4

REPORT INFORMATION
  Report Type: Spontaneous
  Country: JP (occurrence: JP)
  Receive Date: 20170912
  Receipt Date: 20171106
  Transmission Date: 20180320
  Serious: Yes (Other)
  Sender: FDA-Public Use
  Company Number: JP-GILEAD-2017-0290890

PATIENT
  Sex: Female

DRUGS (4)
  1. TENOFOVIR DISOPROXIL FUMARATE. [Suspect]
     Active Substance: TENOFOVIR DISOPROXIL FUMARATE
     Indication: CHRONIC HEPATITIS B
     Dosage: 300 MG, QD
     Route: 048
     Dates: start: 20170818
  2. MAGNESIUM OXIDE. [Concomitant]
     Active Substance: MAGNESIUM OXIDE
  3. MAGSENT [Concomitant]
     Active Substance: DEXTROSE\MAGNESIUM SULFATE HEPTAHYDRATE
     Dosage: UNK
  4. SEISHOKU [Concomitant]
     Active Substance: SODIUM CHLORIDE
     Dosage: UNK

REACTIONS (3)
  - Premature labour [Recovered/Resolved]
  - Hyperphosphataemia [Recovered/Resolved]
  - Maternal exposure during pregnancy [Recovered/Resolved]

NARRATIVE: CASE EVENT DATE: 20170818
